FAERS Safety Report 6748100-5 (Version None)
Quarter: 2010Q2

REPORT INFORMATION
  Report Type: 
  Country: None (occurrence: None)
  Receive Date: 20100531
  Receipt Date: 20100520
  Transmission Date: 20101027
  Serious: Yes (Hospitalization)
  Sender: FDA-Public Use
  Company Number: FR-JNJFOC-20100507904

PATIENT
  Age: 35 Year
  Sex: Female

DRUGS (3)
  1. TAVANIC [Suspect]
     Indication: STAPHYLOCOCCAL SEPSIS
     Route: 048
     Dates: start: 20091008, end: 20091107
  2. RIFAMPICIN [Suspect]
     Indication: STAPHYLOCOCCAL SEPSIS
     Route: 048
     Dates: start: 20091008, end: 20091107
  3. VANCOMYCIN [Concomitant]
     Route: 065

REACTIONS (5)
  - ARTHRALGIA [None]
  - INFLUENZA [None]
  - MYALGIA [None]
  - NEUTROPENIA [None]
  - PYREXIA [None]
